FAERS Safety Report 6399267-2 (Version None)
Quarter: 2009Q4

REPORT INFORMATION
  Report Type: 
  Country: None (occurrence: None)
  Receive Date: 20091014
  Receipt Date: 20091005
  Transmission Date: 20100525
  Serious: Yes (Death)
  Sender: FDA-Public Use
  Company Number: US-RANBAXY-2009RR-25280

PATIENT
  Sex: Female

DRUGS (16)
  1. ACETAMINOPHEN [Suspect]
     Indication: HEADACHE
     Dosage: 2 G, 1/WEEK
  2. ACETAMINOPHEN [Suspect]
     Dosage: 1 G, 1/WEEK
  3. SUNITINIB [Suspect]
     Indication: GASTROINTESTINAL CANCER METASTATIC
     Dosage: 50 MG, QD
     Dates: start: 20040701
  4. LEVOTHYROXINE [Suspect]
     Indication: HYPOTHYROIDISM
     Dosage: 50 UG, QD
     Route: 048
  5. LEVOTHYROXINE [Suspect]
     Dosage: 100 UG, QD
  6. LEVOTHYROXINE [Suspect]
     Dosage: 150 UG, QD
  7. TYLENOL [Suspect]
     Indication: INSOMNIA
     Dosage: 500 MG, QD
  8. IMATINIB MESYLATE [Concomitant]
     Dosage: 400 MG, QD
     Dates: start: 20030601
  9. IMATINIB MESYLATE [Concomitant]
     Dosage: 600 MG, QD
     Dates: start: 20040301
  10. IMATINIB MESYLATE [Concomitant]
     Dosage: 800 MG, QD
  11. METHYLPREDNISOLONE [Concomitant]
     Dosage: 60 MG, QID
     Route: 042
  12. SODIUM BICARBONATE IN PLASTIC CONTAINER [Concomitant]
  13. VITAMIN K TAB [Concomitant]
  14. MONTELUKAST SODIUM [Concomitant]
     Indication: ASTHMA
     Dosage: 10 MG, QD
  15. CETIRIZINE HIDROCHLORIDE [Concomitant]
     Indication: ASTHMA
  16. ALBUTEROL [Concomitant]
     Indication: ASTHMA
     Dosage: UNK

REACTIONS (2)
  - DRUG INTERACTION [None]
  - HEPATIC FAILURE [None]
